FAERS Safety Report 17430639 (Version 1)
Quarter: 2020Q1

REPORT INFORMATION
  Report Type: Spontaneous
  Country: US (occurrence: US)
  Receive Date: 20200216
  Receipt Date: 20200216
  Transmission Date: 20200409
  Serious: Yes (Other)
  Sender: FDA-Public Use
  Company Number: None

PATIENT
  Age: 26 Year
  Sex: Male
  Weight: 69.75 kg

DRUGS (8)
  1. DEXTROAMPHET SACCHARAT, AMPHET ASPARTATE, DEXTROAMPHET SULFATE AND AMPHET SULFAT [Suspect]
     Active Substance: AMPHETAMINE ASPARTATE\AMPHETAMINE SULFATE\DEXTROAMPHETAMINE SACCHARATE\DEXTROAMPHETAMINE SULFATE
     Indication: ATTENTION DEFICIT/HYPERACTIVITY DISORDER
     Dosage: ?          QUANTITY:90 TABLET(S);?
     Route: 048
     Dates: start: 20200116, end: 20200216
  2. GABAPENTIN. [Concomitant]
     Active Substance: GABAPENTIN
  3. FOLIC ACID DAILY MEN^S MULTIVITAMIN [Concomitant]
  4. DEXTROAMPHET SACCHARAT, AMPHET ASPARTATE, DEXTROAMPHET SULFATE AND AMPHET SULFAT [Concomitant]
     Active Substance: AMPHETAMINE ASPARTATE\AMPHETAMINE SULFATE\DEXTROAMPHETAMINE SACCHARATE\DEXTROAMPHETAMINE SULFATE
  5. SUBOXONE (GENERIC) [Concomitant]
  6. BUPROPION. [Concomitant]
     Active Substance: BUPROPION
  7. CLONIDINE. [Concomitant]
     Active Substance: CLONIDINE
  8. L-METHYLFOLATE [Concomitant]
     Active Substance: LEVOMEFOLIC ACID

REACTIONS (4)
  - Product substitution issue [None]
  - Feeling jittery [None]
  - Disturbance in attention [None]
  - Therapeutic response decreased [None]

NARRATIVE: CASE EVENT DATE: 20200116
